FAERS Safety Report 12598520 (Version 1)
Quarter: 2016Q3

REPORT INFORMATION
  Report Type: Spontaneous
  Country: US (occurrence: US)
  Receive Date: 20160727
  Receipt Date: 20160727
  Transmission Date: 20161109
  Serious: No
  Sender: FDA-Public Use
  Company Number: US-BAUSCH-BL-2015-025959

PATIENT
  Age: 79 Year
  Sex: Female

DRUGS (4)
  1. ISTALOL [Suspect]
     Active Substance: TIMOLOL MALEATE
     Indication: GLAUCOMA
     Route: 047
     Dates: start: 20150628, end: 2015
  2. CORTISONE [Suspect]
     Active Substance: CORTISONE\HYDROCORTISONE
     Indication: OCULAR HYPERAEMIA
     Route: 065
  3. CORTISONE [Suspect]
     Active Substance: CORTISONE\HYDROCORTISONE
     Indication: EYE PRURITUS
  4. LATANOPROST. [Concomitant]
     Active Substance: LATANOPROST
     Indication: GLAUCOMA
     Route: 047

REACTIONS (10)
  - Pruritus [Not Recovered/Not Resolved]
  - Eye pruritus [Not Recovered/Not Resolved]
  - Eye swelling [Unknown]
  - Vision blurred [Not Recovered/Not Resolved]
  - Erythema [Not Recovered/Not Resolved]
  - Drug ineffective [Unknown]
  - Dry skin [Not Recovered/Not Resolved]
  - Ocular hyperaemia [Not Recovered/Not Resolved]
  - Eye irritation [Not Recovered/Not Resolved]
  - Dark circles under eyes [Not Recovered/Not Resolved]

NARRATIVE: CASE EVENT DATE: 2015
